FAERS Safety Report 9775014 (Version 1)
Quarter: 2013Q4

REPORT INFORMATION
  Report Type: Spontaneous
  Country: US (occurrence: US)
  Receive Date: 20131220
  Receipt Date: 20131220
  Transmission Date: 20140711
  Serious: No
  Sender: FDA-Public Use
  Company Number: US-GLAXOSMITHKLINE-A1036820A

PATIENT
  Age: 69 Year
  Sex: Male

DRUGS (9)
  1. AVODART [Suspect]
     Indication: PRODUCT USED FOR UNKNOWN INDICATION
     Dosage: 1CAP PER DAY
     Route: 048
  2. ADVAIR DISKUS [Concomitant]
  3. PANTOPRAZOLE [Concomitant]
  4. HYDROCHLOROTHIAZIDE [Concomitant]
  5. LOVASTATIN [Concomitant]
  6. UROXATRAL [Concomitant]
  7. SINGULAIR [Concomitant]
  8. COMBIVENT [Concomitant]
  9. OXYGEN [Concomitant]

REACTIONS (3)
  - Malaise [Not Recovered/Not Resolved]
  - Nausea [Not Recovered/Not Resolved]
  - Product quality issue [Not Recovered/Not Resolved]
